FAERS Safety Report 11269622 (Version 4)
Quarter: 2015Q4

REPORT INFORMATION
  Report Type: Spontaneous
  Country: SI (occurrence: SI)
  Receive Date: 20150714
  Receipt Date: 20151202
  Transmission Date: 20160304
  Serious: Yes (Hospitalization)
  Sender: FDA-Public Use
  Company Number: SI-WATSON-2015-14358

PATIENT
  Age: 66 Year
  Sex: Male

DRUGS (7)
  1. DOXAZOSIN [Suspect]
     Active Substance: DOXAZOSIN\DOXAZOSIN MESYLATE
     Indication: SUICIDE ATTEMPT
     Dosage: 200 MG, UNK
     Route: 065
  2. NIFEDIPINE (UNKNOWN) [Suspect]
     Active Substance: NIFEDIPINE
     Indication: SUICIDE ATTEMPT
     Dosage: 600 MG, UNK
     Route: 065
  3. ACETYLSALICYLIC ACID (UNKNOWN) [Suspect]
     Active Substance: ASPIRIN
     Indication: SUICIDE ATTEMPT
     Dosage: 4000 MG, UNK
     Route: 065
  4. BISOPROLOL (UNKNOWN) [Suspect]
     Active Substance: BISOPROLOL
     Indication: SUICIDE ATTEMPT
     Dosage: 450 MG, UNK
     Route: 065
  5. AMLODIPINE [Suspect]
     Active Substance: AMLODIPINE BESYLATE
     Indication: SUICIDE ATTEMPT
     Dosage: 300 MG, UNK
     Route: 065
  6. TORASEMIDE (UNKNOWN) [Suspect]
     Active Substance: TORSEMIDE
     Indication: SUICIDE ATTEMPT
     Dosage: 150 MG, UNK
     Route: 065
  7. IBUPROFEN (UNKNOWN) [Suspect]
     Active Substance: IBUPROFEN
     Indication: SUICIDE ATTEMPT
     Dosage: 5000 MG, UNKNOWN
     Route: 065

REACTIONS (7)
  - Loss of consciousness [Recovered/Resolved]
  - Hypotension [Recovered/Resolved]
  - Bradycardia [Recovered/Resolved]
  - Suicide attempt [Recovered/Resolved]
  - Overdose [Recovered/Resolved]
  - Metabolic acidosis [Recovered/Resolved]
  - Left ventricular dysfunction [Recovered/Resolved]
